FAERS Safety Report 21978823 (Version 1)
Quarter: 2023Q1

REPORT INFORMATION
  Report Type: Spontaneous
  Country: GB (occurrence: None)
  Receive Date: 20230210
  Receipt Date: 20230210
  Transmission Date: 20230417
  Serious: Yes (Other)
  Sender: FDA-Public Use
  Company Number: GB-Eisai Medical Research-EC-2023-133532

PATIENT
  Age: 67 Year
  Sex: Female
  Weight: 74.2 kg

DRUGS (2)
  1. LENVIMA [Suspect]
     Active Substance: LENVATINIB
     Indication: Endometrial cancer
     Route: 048
     Dates: start: 20221104, end: 20230119
  2. KEYTRUDA [Concomitant]
     Active Substance: PEMBROLIZUMAB
     Indication: Endometrial cancer
     Dosage: FREQUENCY UNKNOWN
     Route: 041
     Dates: start: 20221104

REACTIONS (2)
  - Female genital tract fistula [Not Recovered/Not Resolved]
  - Urogenital fistula [Not Recovered/Not Resolved]

NARRATIVE: CASE EVENT DATE: 20230119
